FAERS Safety Report 4893084-8 (Version None)
Quarter: 2005Q4

REPORT INFORMATION
  Report Type: 
  Country: None (occurrence: None)
  Receive Date: 20051223
  Receipt Date: 20051109
  Transmission Date: 20060501
  Serious: Yes (Other)
  Sender: FDA-Public Use
  Company Number: 219363

PATIENT
  Age: 65 Year
  Sex: Male
  Weight: 67.6 kg

DRUGS (9)
  1. AVASTIN [Suspect]
     Indication: NON-SMALL CELL LUNG CANCER
     Dosage: 1020 G, Q3W, INTRAVENOUS
     Route: 042
     Dates: start: 20050913, end: 20051026
  2. TAXOTERE [Concomitant]
  3. CARBOPLATIN [Concomitant]
  4. ASPIRIN [Concomitant]
  5. LOVENOX [Concomitant]
  6. LIPITOR [Concomitant]
  7. ELAVIL [Concomitant]
  8. PRILOSEC [Concomitant]
  9. OXYCODONE (OXYCODONE) [Concomitant]

REACTIONS (2)
  - CEREBROVASCULAR ACCIDENT [None]
  - DEEP VEIN THROMBOSIS [None]
